FAERS Safety Report 7478376-0 (Version None)
Quarter: 2011Q2

REPORT INFORMATION
  Report Type: 
  Country: None (occurrence: None)
  Receive Date: 20110513
  Receipt Date: 20100614
  Transmission Date: 20111010
  Serious: No
  Sender: FDA-Public Use
  Company Number: US-PFIZER INC-2010075114

PATIENT
  Sex: Male
  Weight: 116 kg

DRUGS (1)
  1. CELEBREX [Suspect]
     Indication: BURSITIS
     Dosage: 200 MG, 1X/DAY
     Route: 048
     Dates: start: 20100611, end: 20100611

REACTIONS (1)
  - ABDOMINAL PAIN UPPER [None]
